FAERS Safety Report 9607542 (Version 2)
Quarter: 2014Q2

REPORT INFORMATION
  Report Type: Spontaneous
  Country: SE (occurrence: None)
  Receive Date: 20131004
  Receipt Date: 20140521
  Transmission Date: 20141212
  Serious: Yes (Other)
  Sender: FDA-Public Use
  Company Number: SE-SEPTODONT-201301516

PATIENT
  Age: 32 Year
  Sex: Female

DRUGS (1)
  1. SEPTOCAINE FORTE [Suspect]
     Indication: LOCAL ANAESTHESIA
     Route: 004
     Dates: start: 20120214, end: 20120214

REACTIONS (3)
  - Hypoaesthesia [None]
  - Anosmia [None]
  - Ageusia [None]
